FAERS Safety Report 9989155 (Version 1)
Quarter: 2014Q1

REPORT INFORMATION
  Report Type: Spontaneous
  Country: TW (occurrence: TW)
  Receive Date: 20140310
  Receipt Date: 20140310
  Transmission Date: 20141002
  Serious: Yes (Hospitalization)
  Sender: FDA-Public Use
  Company Number: TW-SA-2014SA025338

PATIENT
  Age: 86 Year
  Sex: Male

DRUGS (2)
  1. PLAVIX [Suspect]
     Indication: PRODUCT USED FOR UNKNOWN INDICATION
     Route: 048
     Dates: start: 20130928
  2. FUROSEMIDE [Concomitant]
     Route: 048

REACTIONS (3)
  - Cardiac failure congestive [Unknown]
  - Pulmonary oedema [Recovered/Resolved]
  - Cough [Recovered/Resolved]
